FAERS Safety Report 6886245-X (Version None)
Quarter: 2010Q3

REPORT INFORMATION
  Report Type: 
  Country: None (occurrence: None)
  Receive Date: 20100729
  Receipt Date: 20081010
  Transmission Date: 20110219
  Serious: No
  Sender: FDA-Public Use
  Company Number: US-PFIZER INC-2008065026

PATIENT
  Sex: Female
  Weight: 66.8 kg

DRUGS (3)
  1. CELEBREX [Suspect]
     Indication: OSTEOARTHRITIS
     Dates: start: 20080301
  2. VALSARTAN [Concomitant]
     Indication: HYPERTENSION
  3. CRESTOR [Concomitant]
     Indication: BLOOD CHOLESTEROL INCREASED

REACTIONS (1)
  - DRUG INEFFECTIVE [None]
